FAERS Safety Report 19911751 (Version 1)
Quarter: 2021Q4

REPORT INFORMATION
  Report Type: Other
  Country: US (occurrence: US)
  Receive Date: 20211004
  Receipt Date: 20211004
  Transmission Date: 20220304
  Serious: Yes (Death)
  Sender: FDA-Public Use
  Company Number: US-CAPLIN STERILES LIMITED-2119113

PATIENT
  Age: 55 Year
  Sex: Male

DRUGS (1)
  1. VERAPAMIL HYDROCHLORIDE [Suspect]
     Active Substance: VERAPAMIL HYDROCHLORIDE
     Route: 065

REACTIONS (6)
  - Intentional overdose [Fatal]
  - Hypomagnesaemia [Fatal]
  - Hypokalaemia [Fatal]
  - Atrioventricular block [Fatal]
  - Blood glucose increased [Fatal]
  - Completed suicide [Fatal]
